FAERS Safety Report 5272901-6 (Version None)
Quarter: 2007Q1

REPORT INFORMATION
  Report Type: 
  Country: None (occurrence: None)
  Receive Date: 20061219
  Receipt Date: 20061009
  Transmission Date: 20070707
  Serious: Yes (Hospitalization)
  Sender: FDA-Public Use
  Company Number: US-JNJFOC-20060502306

PATIENT
  Age: 28 Year
  Sex: Female
  Weight: 72.6 kg

DRUGS (5)
  1. ORTHO EVRA [Suspect]
     Indication: CONTRACEPTION
     Dosage: 1 DOSE(S), 3 IN 4 WEEK, TRANSDERMAL
     Route: 062
     Dates: start: 20041001, end: 20050601
  2. HYDROCODONE (HYDROCODONE) [Concomitant]
  3. FLEXERIL [Concomitant]
  4. COLACE (DOCUSATE SODIUM) [Concomitant]
  5. KEFLEX [Concomitant]

REACTIONS (1)
  - DEEP VEIN THROMBOSIS [None]
